FAERS Safety Report 8518947-3 (Version None)
Quarter: 2012Q3

REPORT INFORMATION
  Report Type: 
  Country: None (occurrence: None)
  Receive Date: 20120718
  Receipt Date: 20120710
  Transmission Date: 20120928
  Serious: Yes (Other)
  Sender: FDA-Public Use
  Company Number: JP-GLAXOSMITHKLINE-B0795328A

PATIENT
  Age: 54 Year
  Sex: Male

DRUGS (32)
  1. CHINESE MEDICINE [Suspect]
     Dosage: 1IUAX PER DAY
     Route: 048
     Dates: start: 20080404, end: 20080404
  2. ATARAX [Concomitant]
     Dosage: 1IUAX PER DAY
     Dates: start: 20080328, end: 20080331
  3. CINAL [Concomitant]
     Dosage: 2IUAX PER DAY
     Route: 048
     Dates: start: 20080328, end: 20080410
  4. HEPARIN [Concomitant]
     Dosage: 35ML PER DAY
     Dates: start: 20080328, end: 20080328
  5. HEPARIN LOCK-FLUSH [Concomitant]
     Dosage: 1IUAX PER DAY
     Route: 042
     Dates: start: 20080328, end: 20080329
  6. ISOTONIC SODIUM CHLORIDE SOLUTION [Concomitant]
     Dosage: 10ML PER DAY
     Route: 042
     Dates: start: 20080328, end: 20080328
  7. SEISHOKU [Concomitant]
     Dosage: 1IUAX PER DAY
     Route: 042
     Dates: start: 20080328, end: 20080329
  8. SEISHOKU [Concomitant]
     Dosage: 2.9IUAX PER DAY
     Route: 042
     Dates: start: 20080328, end: 20080328
  9. SEISHOKU [Concomitant]
     Dosage: 2IUAX PER DAY
     Route: 042
     Dates: start: 20080328, end: 20080330
  10. DOPAMINE HCL [Concomitant]
     Dosage: 1IUAX PER DAY
     Route: 042
     Dates: start: 20080328, end: 20080330
  11. NICARDIPINE HCL [Concomitant]
     Dosage: 1IUAX PER DAY
     Route: 042
     Dates: start: 20080328, end: 20080330
  12. XYLOCAINE W/ EPINEPHRINE [Concomitant]
     Dosage: 10ML PER DAY
     Dates: start: 20080328, end: 20080328
  13. CHINESE MEDICINE [Suspect]
     Dosage: 3IUAX PER DAY
     Route: 048
     Dates: start: 20080331, end: 20080403
  14. LACTEC [Concomitant]
     Dosage: 2IUAX PER DAY
     Route: 042
     Dates: start: 20080329, end: 20080330
  15. SEISHOKU [Concomitant]
     Dosage: 1IUAX PER DAY
     Route: 042
     Dates: start: 20080331, end: 20080331
  16. HEPARIN LOCK-FLUSH [Concomitant]
     Dosage: 2IUAX PER DAY
     Route: 042
     Dates: start: 20080330, end: 20080330
  17. CEFAZOLIN SODIUM [Concomitant]
     Dosage: 3IUAX PER DAY
     Dates: start: 20080328, end: 20080328
  18. FERROUS SULFATE TAB [Concomitant]
     Dosage: 2IUAX PER DAY
     Route: 048
     Dates: start: 20080328, end: 20080410
  19. HESPAN IN EXCEL PLASTIC CONTAINER [Concomitant]
     Dosage: 1IUAX PER DAY
     Dates: start: 20080328, end: 20080330
  20. LACTEC [Concomitant]
     Dosage: 1IUAX PER DAY
     Route: 042
     Dates: start: 20080331, end: 20080331
  21. ARIXTRA [Suspect]
     Indication: THROMBOSIS PROPHYLAXIS
     Dosage: 2.5MG PER DAY
     Route: 058
     Dates: start: 20080329
  22. PRIMPERAN TAB [Concomitant]
     Dosage: 1IUAX PER DAY
     Dates: start: 20080328, end: 20080331
  23. PREDOPA [Concomitant]
     Dosage: 1IUAX PER DAY
     Route: 042
     Dates: start: 20080328, end: 20080330
  24. HEPARIN LOCK-FLUSH [Concomitant]
     Dosage: 1IUAX PER DAY
     Route: 042
     Dates: start: 20080331, end: 20080331
  25. FUROSEMIDE [Concomitant]
     Dosage: .5IUAX PER DAY
     Route: 042
     Dates: start: 20080328, end: 20080330
  26. SOLITA-T NO.3 [Concomitant]
     Dosage: 3IUAX PER DAY
     Route: 042
     Dates: start: 20080328, end: 20080331
  27. PENTAZOCINE LACTATE [Concomitant]
     Dosage: .5IUAX PER DAY
     Dates: start: 20080328, end: 20080331
  28. LACTEC [Concomitant]
     Dosage: 5IUAX PER DAY
     Route: 042
     Dates: start: 20080328, end: 20080328
  29. CEFAZOLIN SODIUM [Concomitant]
     Dosage: 2IUAX PER DAY
     Dates: start: 20080329, end: 20080330
  30. WHOLE HUMAN BLOOD [Concomitant]
     Dosage: 2IU PER DAY
     Route: 042
     Dates: start: 20080328, end: 20080329
  31. SEISHOKU [Concomitant]
     Dosage: 3IUAX PER DAY
     Route: 042
     Dates: start: 20080328, end: 20080328
  32. SEISHOKU [Concomitant]
     Dosage: 2IUAX PER DAY
     Route: 042
     Dates: start: 20080329, end: 20080330

REACTIONS (1)
  - HEPATIC ENZYME INCREASED [None]
